FAERS Safety Report 5234042-3 (Version None)
Quarter: 2007Q1

REPORT INFORMATION
  Report Type: 
  Country: None (occurrence: None)
  Receive Date: 20070208
  Receipt Date: 20070129
  Transmission Date: 20070707
  Serious: Yes (Hospitalization)
  Sender: FDA-Public Use
  Company Number: IT-BOEHRINGER INGELHEIM PHARMACEUTICALS, INC.-2006-BP-13652YA

PATIENT
  Sex: Male

DRUGS (4)
  1. OMNIC CAPSULES [Suspect]
     Indication: BENIGN PROSTATIC HYPERPLASIA
     Route: 048
     Dates: start: 20030308, end: 20050221
  2. TAVANIC (LEVOFLOXACIN) [Suspect]
     Indication: PROSTATITIS
     Route: 048
     Dates: start: 20050219, end: 20050225
  3. TAVANIC (LEVOFLOXACIN) [Suspect]
     Indication: BENIGN PROSTATIC HYPERPLASIA
  4. SERENOA REPENS [Concomitant]
     Route: 065

REACTIONS (2)
  - LOSS OF CONSCIOUSNESS [None]
  - PSYCHOMOTOR HYPERACTIVITY [None]
